FAERS Safety Report 4523052-7 (Version None)
Quarter: 2004Q4

REPORT INFORMATION
  Report Type: 
  Country: None (occurrence: None)
  Receive Date: 20041210
  Receipt Date: 20041126
  Transmission Date: 20050328
  Serious: Yes (Other)
  Sender: FDA-Public Use
  Company Number: 200413531EU

PATIENT
  Age: 62 Year
  Sex: Male
  Weight: 70 kg

DRUGS (6)
  1. DOCETAXEL [Suspect]
     Indication: NON-SMALL CELL LUNG CANCER
     Route: 042
     Dates: start: 20031127, end: 20031127
  2. DEXAMETHASONE [Suspect]
     Indication: PROPHYLAXIS
     Route: 058
     Dates: start: 20031217, end: 20031219
  3. TICLID [Concomitant]
     Indication: CARDIOVASCULAR DISORDER
     Route: 048
  4. ZOCOR [Concomitant]
     Indication: HYPERCHOLESTEROLAEMIA
     Route: 048
  5. ISOTEN [Concomitant]
     Indication: PALPITATIONS
     Route: 048
     Dates: end: 20040212
  6. NEORECORMON [Concomitant]
     Indication: ANAEMIA
     Route: 058

REACTIONS (4)
  - ACTIVITIES OF DAILY LIVING IMPAIRED [None]
  - HICCUPS [None]
  - PNEUMONIA [None]
  - SLEEP DISORDER [None]
